FAERS Safety Report 14466014 (Version 4)
Quarter: 2018Q2

REPORT INFORMATION
  Report Type: Report from Study
  Country: None (occurrence: AU)
  Receive Date: 20180131
  Receipt Date: 20180504
  Transmission Date: 20180711
  Serious: Yes (Hospitalization, Other)
  Sender: FDA-Public Use
  Company Number: AU-ABBVIE-18K-008-2240284-00

PATIENT
  Sex: Male
  Weight: 71 kg

DRUGS (3)
  1. HUMIRA [Suspect]
     Active Substance: ADALIMUMAB
     Route: 058
  2. HUMIRA [Suspect]
     Active Substance: ADALIMUMAB
     Indication: CROHN^S DISEASE
     Route: 058
  3. HUMIRA [Suspect]
     Active Substance: ADALIMUMAB
     Route: 058

REACTIONS (6)
  - Gastrointestinal inflammation [Recovering/Resolving]
  - Gastrointestinal infection [Recovering/Resolving]
  - Intestinal stenosis [Recovering/Resolving]
  - Drug level changed [Unknown]
  - Intestinal obstruction [Unknown]
  - Crohn^s disease [Unknown]
